FAERS Safety Report 13878350 (Version 1)
Quarter: 2017Q3

REPORT INFORMATION
  Report Type: Spontaneous
  Country: US (occurrence: US)
  Receive Date: 20170817
  Receipt Date: 20170817
  Transmission Date: 20171127
  Serious: No
  Sender: FDA-Public Use
  Company Number: US-ROCHE-1858242

PATIENT
  Age: 66 Year
  Sex: Female

DRUGS (7)
  1. PEGINTERFERON ALFA-2B [Suspect]
     Active Substance: PEGINTERFERON ALFA-2B
     Indication: HEPATITIS C
     Route: 065
     Dates: start: 1999, end: 2000
  2. XANAX [Concomitant]
     Active Substance: ALPRAZOLAM
  3. PEGASYS [Suspect]
     Active Substance: PEGINTERFERON ALFA-2A
     Indication: HEPATITIS C
     Route: 065
  4. RIBAVIRIN. [Suspect]
     Active Substance: RIBAVIRIN
     Indication: HEPATITIS C
     Route: 065
     Dates: start: 1999, end: 2000
  5. RIBAVIRIN. [Suspect]
     Active Substance: RIBAVIRIN
     Route: 065
     Dates: end: 201610
  6. VIEKIRA PAK [Concomitant]
     Active Substance: DASABUVIR\OMBITASVIR\PARITAPREVIR\RITONAVIR
  7. VALIUM [Suspect]
     Active Substance: DIAZEPAM
     Indication: PRODUCT USED FOR UNKNOWN INDICATION
     Route: 065

REACTIONS (11)
  - Erythema [Unknown]
  - Anger [Unknown]
  - Hyperhidrosis [Not Recovered/Not Resolved]
  - Therapy non-responder [Unknown]
  - Viral load increased [Unknown]
  - Fatigue [Unknown]
  - Thyroid disorder [Not Recovered/Not Resolved]
  - Hypophagia [Unknown]
  - Neuropathy peripheral [Not Recovered/Not Resolved]
  - Temperature regulation disorder [Unknown]
  - Overweight [Unknown]
